FAERS Safety Report 5604565-3 (Version None)
Quarter: 2008Q1

REPORT INFORMATION
  Report Type: 
  Country: None (occurrence: None)
  Receive Date: 20080128
  Receipt Date: 20080117
  Transmission Date: 20080703
  Serious: Yes (Hospitalization, Other)
  Sender: FDA-Public Use
  Company Number: US-MERCK-0712USA07957

PATIENT
  Age: 63 Year
  Sex: Male

DRUGS (20)
  1. DECADRON [Suspect]
     Indication: MULTIPLE MYELOMA
     Route: 048
     Dates: start: 20040501
  2. DECADRON [Suspect]
     Route: 048
     Dates: start: 20070801
  3. DECADRON [Suspect]
     Route: 048
     Dates: start: 20060901, end: 20070701
  4. REVLIMID [Suspect]
     Indication: MULTIPLE MYELOMA
     Route: 048
     Dates: start: 20060901, end: 20070701
  5. REVLIMID [Suspect]
     Route: 048
     Dates: start: 20070801
  6. MIRTAZAPINE [Concomitant]
     Route: 065
  7. RISPERIDONE [Concomitant]
     Route: 065
  8. SUCRALFATE [Concomitant]
     Route: 065
  9. POTASSIUM CHLORIDE [Concomitant]
     Route: 065
  10. WARFARIN [Concomitant]
     Route: 065
  11. PROTONIX [Concomitant]
     Route: 065
  12. LORATADINE [Concomitant]
     Route: 065
  13. MAGNESIUM GLUCONATE [Concomitant]
     Route: 048
  14. TAMSULOSIN HYDROCHLORIDE [Concomitant]
     Route: 065
  15. SENNA [Concomitant]
     Route: 065
  16. COLACE [Concomitant]
     Route: 048
  17. DIGOXIN [Concomitant]
     Route: 048
  18. FENTANYL [Concomitant]
     Route: 061
  19. THALOMID [Suspect]
     Indication: MULTIPLE MYELOMA
     Route: 065
     Dates: start: 20040501
  20. DOXIL [Suspect]
     Indication: MULTIPLE MYELOMA
     Route: 065
     Dates: start: 20040401

REACTIONS (9)
  - ASTHENIA [None]
  - DEEP VEIN THROMBOSIS [None]
  - FACIAL BONES FRACTURE [None]
  - INCOHERENT [None]
  - MENTAL STATUS CHANGES [None]
  - PULMONARY EMBOLISM [None]
  - SPEECH DISORDER [None]
  - SUPRAVENTRICULAR TACHYCARDIA [None]
  - VISUAL DISTURBANCE [None]
